FAERS Safety Report 24688408 (Version 2)
Quarter: 2025Q1

REPORT INFORMATION
  Report Type: Report from Study
  Country: US (occurrence: US)
  Receive Date: 20241202
  Receipt Date: 20250327
  Transmission Date: 20250408
  Serious: Yes (Hospitalization)
  Sender: ABBVIE
  Company Number: US-ABBVIE-6024850

PATIENT
  Age: 46 Year
  Sex: Female

DRUGS (2)
  1. RINVOQ [Suspect]
     Active Substance: UPADACITINIB
     Indication: Rheumatoid arthritis
     Route: 048
     Dates: start: 202302
  2. RINVOQ [Suspect]
     Active Substance: UPADACITINIB
     Indication: Rheumatoid arthritis
     Route: 048
     Dates: start: 20230112

REACTIONS (10)
  - Cholelithiasis obstructive [Unknown]
  - Ocular icterus [Recovered/Resolved]
  - Blood bilirubin increased [Recovering/Resolving]
  - Tooth discolouration [Recovering/Resolving]
  - Hepatic function abnormal [Recovering/Resolving]
  - Chromaturia [Recovered/Resolved]
  - Gastrooesophageal reflux disease [Recovered/Resolved]
  - Hepatic steatosis [Unknown]
  - Pancreatitis [Unknown]
  - Vomiting [Recovered/Resolved]

NARRATIVE: CASE EVENT DATE: 20241101
